FAERS Safety Report 21281396 (Version 1)
Quarter: 2022Q3

REPORT INFORMATION
  Report Type: Spontaneous
  Country: US (occurrence: None)
  Receive Date: 20220901
  Receipt Date: 20220901
  Transmission Date: 20221027
  Serious: Yes (Disabling)
  Sender: FDA-Public Use
  Company Number: None

PATIENT
  Age: 53 Year
  Sex: Male
  Weight: 109.8 kg

DRUGS (1)
  1. DALBAVANCIN [Suspect]
     Active Substance: DALBAVANCIN
     Indication: Cellulitis
     Dosage: OTHER FREQUENCY : ONCE;?
     Route: 041
     Dates: start: 20220719, end: 20220719

REACTIONS (2)
  - Infusion site extravasation [None]
  - Muscular weakness [None]

NARRATIVE: CASE EVENT DATE: 20220719
